FAERS Safety Report 4841845-3 (Version None)
Quarter: 2005Q4

REPORT INFORMATION
  Report Type: 
  Country: None (occurrence: None)
  Receive Date: 20051130
  Receipt Date: 20051123
  Transmission Date: 20060501
  Serious: Yes (Hospitalization)
  Sender: FDA-Public Use
  Company Number: PHRM2005FR03016

PATIENT
  Age: 51 Year
  Sex: Female
  Weight: 70 kg

DRUGS (6)
  1. TAREG [Suspect]
     Indication: HYPERTENSION
     Dosage: 1 DF, QD
     Route: 048
     Dates: start: 20051005, end: 20051015
  2. DAFLON [Suspect]
     Indication: HAEMORRHOIDS
     Dosage: 3 DF/DAY
     Route: 048
     Dates: start: 20051011, end: 20051015
  3. NUREFLEX [Suspect]
     Indication: HAEMORRHOIDS
     Dosage: 2 DF/DAY
     Route: 048
     Dates: start: 20051011, end: 20051015
  4. PROCTOLOG [Suspect]
     Indication: HAEMORRHOIDS
     Dosage: 2 DF/DAY
     Route: 061
     Dates: start: 20051011, end: 20051015
  5. FLUDEX [Concomitant]
     Dosage: 1 DF, QD
     Route: 048
  6. MEGAMAG [Concomitant]
     Dosage: 4 DF/DAY
     Route: 048

REACTIONS (5)
  - ALANINE AMINOTRANSFERASE INCREASED [None]
  - EOSINOPHIL COUNT INCREASED [None]
  - GENERALISED ERYTHEMA [None]
  - PRURITUS [None]
  - RASH MACULO-PAPULAR [None]
